FAERS Safety Report 21675254 (Version 1)
Quarter: 2022Q4

REPORT INFORMATION
  Report Type: Spontaneous
  Country: IT (occurrence: IT)
  Receive Date: 20221202
  Receipt Date: 20221202
  Transmission Date: 20230112
  Serious: Yes (Other)
  Sender: FDA-Public Use
  Company Number: IT-ASTELLAS-2022US042334

PATIENT

DRUGS (3)
  1. BENDAMUSTINE HYDROCHLORIDE [Suspect]
     Active Substance: BENDAMUSTINE HYDROCHLORIDE
     Indication: Chronic lymphocytic leukaemia refractory
     Dosage: 70 MG/M2,(ON DAYS 1, 2 OF CYCLES 1 THROUGH 6)
     Route: 042
  2. RITUXIMAB [Suspect]
     Active Substance: RITUXIMAB
     Indication: Chronic lymphocytic leukaemia refractory
     Dosage: 375 MG/M2, CYCLIC (DAY 1 OF FIRST CYCLE)
     Route: 042
  3. RITUXIMAB [Suspect]
     Active Substance: RITUXIMAB
     Dosage: 500 MG/M2, CYCLIC (ON DAY 1 OF CYCLES 2 THROUGH 6)
     Route: 042

REACTIONS (1)
  - Bronchitis [Unknown]
